FAERS Safety Report 6921727-3 (Version None)
Quarter: 2010Q3

REPORT INFORMATION
  Report Type: 
  Country: None (occurrence: None)
  Receive Date: 20100812
  Receipt Date: 20100802
  Transmission Date: 20110219
  Serious: Yes (Other)
  Sender: FDA-Public Use
  Company Number: FR-GENZYME-FABR-1001225

PATIENT

DRUGS (4)
  1. FABRAZYME [Suspect]
     Indication: FABRY'S DISEASE
     Dosage: 1 MG/KG, Q2W
     Route: 042
     Dates: start: 20040512, end: 20091001
  2. FABRAZYME [Suspect]
     Dosage: 0.3 MG/KG, Q2W
     Route: 042
     Dates: start: 20091001
  3. ODRIK [Concomitant]
     Indication: PRODUCT USED FOR UNKNOWN INDICATION
  4. UVEDOSE [Concomitant]
     Indication: PRODUCT USED FOR UNKNOWN INDICATION

REACTIONS (2)
  - HYPERTROPHIC CARDIOMYOPATHY [None]
  - RENAL FAILURE [None]
